FAERS Safety Report 14426052 (Version 3)
Quarter: 2018Q1

REPORT INFORMATION
  Report Type: Spontaneous
  Country: US (occurrence: US)
  Receive Date: 20180123
  Receipt Date: 20180206
  Transmission Date: 20180509
  Serious: Yes (Hospitalization)
  Sender: FDA-Public Use
  Company Number: US-VERTEX PHARMACEUTICALS-2018-000344

PATIENT
  Age: 16 Year
  Sex: Male

DRUGS (4)
  1. SODIUM CHLORIDE. [Concomitant]
     Active Substance: SODIUM CHLORIDE
     Dosage: 4 MILLILITER
  2. TOBI [Concomitant]
     Active Substance: TOBRAMYCIN
     Dosage: 28 MG
  3. PULMOZYME [Concomitant]
     Active Substance: DORNASE ALFA
     Dosage: UNK
  4. ORKAMBI [Suspect]
     Active Substance: IVACAFTOR\LUMACAFTOR
     Indication: CYSTIC FIBROSIS
     Dosage: 2 DOSAGE FORM (200/125 MG EACH), BID
     Route: 048
     Dates: start: 20170201

REACTIONS (2)
  - Blood pressure abnormal [Unknown]
  - Infective pulmonary exacerbation of cystic fibrosis [Unknown]

NARRATIVE: CASE EVENT DATE: 2018
